FAERS Safety Report 18755936 (Version 1)
Quarter: 2021Q1

REPORT INFORMATION
  Report Type: Spontaneous
  Country: US (occurrence: US)
  Receive Date: 20210116
  Receipt Date: 20210116
  Transmission Date: 20210419
  Serious: Yes (Death)
  Sender: FDA-Public Use
  Company Number: None

PATIENT
  Age: 51 Year
  Sex: Female
  Weight: 51 kg

DRUGS (1)
  1. METHOTREXATE. [Suspect]
     Active Substance: METHOTREXATE
     Indication: RHEUMATOID ARTHRITIS
     Route: 048

REACTIONS (14)
  - Diarrhoea [None]
  - Chest pain [None]
  - Fatigue [None]
  - Vomiting [None]
  - Extra dose administered [None]
  - Nausea [None]
  - Pancytopenia [None]
  - Pyrexia [None]
  - Glossodynia [None]
  - Tachypnoea [None]
  - Hypoxia [None]
  - Oral mucosal erythema [None]
  - Bloody discharge [None]
  - Bradycardia [None]

NARRATIVE: CASE EVENT DATE: 20201124
